FAERS Safety Report 16013295 (Version 1)
Quarter: 2019Q1

REPORT INFORMATION
  Report Type: Spontaneous
  Country: US (occurrence: US)
  Receive Date: 20190227
  Receipt Date: 20190227
  Transmission Date: 20190418
  Serious: Yes (Other)
  Sender: FDA-Public Use
  Company Number: US-NOVOPROD-611968

PATIENT
  Age: 66 Year
  Sex: Female

DRUGS (4)
  1. SAXENDA [Suspect]
     Active Substance: LIRAGLUTIDE
     Dosage: 2.4 MG, UNK
     Route: 058
     Dates: start: 2018, end: 20180716
  2. SAXENDA [Suspect]
     Active Substance: LIRAGLUTIDE
     Dosage: 1.8 MG, UNK
     Route: 058
     Dates: start: 2018, end: 2018
  3. SAXENDA [Suspect]
     Active Substance: LIRAGLUTIDE
     Dosage: 1.2 MG, UNK
     Route: 058
     Dates: start: 2018, end: 2018
  4. SAXENDA [Suspect]
     Active Substance: LIRAGLUTIDE
     Indication: WEIGHT CONTROL
     Dosage: 0.6 MG, UNK
     Route: 058
     Dates: start: 20180620, end: 2018

REACTIONS (2)
  - Pancreatitis [Recovering/Resolving]
  - Ill-defined disorder [Unknown]

NARRATIVE: CASE EVENT DATE: 2018
